FAERS Safety Report 4433055-9 (Version None)
Quarter: 2004Q3

REPORT INFORMATION
  Report Type: 
  Country: None (occurrence: None)
  Receive Date: 20040721
  Receipt Date: 20030620
  Transmission Date: 20050211
  Serious: Yes (Hospitalization)
  Sender: FDA-Public Use
  Company Number: WAES0306USA02588

PATIENT
  Sex: Male

DRUGS (1)
  1. VIOXX [Suspect]
     Indication: PAIN
     Dosage: DAILY/ PO
     Route: 048
     Dates: end: 20030601

REACTIONS (1)
  - GASTROINTESTINAL HAEMORRHAGE [None]
